FAERS Safety Report 6522963-0 (Version None)
Quarter: 2009Q4

REPORT INFORMATION
  Report Type: 
  Country: None (occurrence: None)
  Receive Date: 20091230
  Receipt Date: 20091217
  Transmission Date: 20100525
  Serious: Yes (Congenital Anomaly)
  Sender: FDA-Public Use
  Company Number: GB-WATSON-2009-11019

PATIENT
  Age: 40 Week
  Sex: Male
  Weight: 3.5 kg

DRUGS (3)
  1. LAMOTRIGINE (WATSON LABORATORIES) [Suspect]
     Indication: EPILEPSY
     Dosage: 300 MG, DAILY
     Route: 064
  2. TOPIRAMATE [Suspect]
     Indication: EPILEPSY
     Dosage: 250 MG, DAILY
     Route: 064
  3. PHENOBARBITAL TAB [Suspect]
     Indication: EPILEPSY
     Dosage: 60 MG, DAILY
     Route: 065

REACTIONS (2)
  - CLEFT LIP [None]
  - CLEFT PALATE [None]
